FAERS Safety Report 4946367-7 (Version None)
Quarter: 2006Q1

REPORT INFORMATION
  Report Type: 
  Country: None (occurrence: None)
  Receive Date: 20060301
  Receipt Date: 20060301
  Transmission Date: 20060701
  Serious: Yes (Hospitalization)
  Sender: FDA-Public Use
  Company Number: None

PATIENT
  Age: 72 Year
  Sex: Female
  Weight: 69.8539 kg

DRUGS (14)
  1. TAXOTERE [Suspect]
     Indication: TRANSITIONAL CELL CARCINOMA
     Dosage: 135MG/Q 3 WEEK/IV
     Route: 042
     Dates: start: 20060207
  2. GLEEVEC [Suspect]
     Indication: TRANSITIONAL CELL CARCINOMA
     Dosage: 600MGQD FOR 6 DAYS/ PO
     Route: 048
     Dates: start: 20060206
  3. PEPCID [Concomitant]
  4. NEURONTIN [Concomitant]
  5. ZOCOR [Concomitant]
  6. ACTOSE [Concomitant]
  7. TOPROL-XL [Concomitant]
  8. NOVOLIN [Concomitant]
  9. PROTONUX [Concomitant]
  10. AMBIEN [Concomitant]
  11. NORVASC [Concomitant]
  12. M.V.I. [Concomitant]
  13. ZOFRAN [Concomitant]
  14. HYDROXYZINE [Concomitant]

REACTIONS (7)
  - BREATH SOUNDS ABNORMAL [None]
  - COUGH [None]
  - DYSPNOEA [None]
  - LUNG CONSOLIDATION [None]
  - MUCOSAL INFLAMMATION [None]
  - PLEURAL EFFUSION [None]
  - PYREXIA [None]
